FAERS Safety Report 21095953 (Version 1)
Quarter: 2022Q3

REPORT INFORMATION
  Report Type: Report from Study
  Country: US (occurrence: US)
  Receive Date: 20220718
  Receipt Date: 20220718
  Transmission Date: 20221026
  Serious: Yes (Other)
  Sender: FDA-Public Use
  Company Number: US-OTSUKA-2021_044942

PATIENT
  Sex: Male
  Weight: 74.84 kg

DRUGS (2)
  1. CEDAZURIDINE\DECITABINE [Suspect]
     Active Substance: CEDAZURIDINE\DECITABINE
     Indication: Chronic myelomonocytic leukaemia
     Dosage: 135 MG (35 MG DECITABINE AND 100 MG CEDAZURIDINE), QD 1-3 DAYS EVERY 28 DAY CYCLE
     Route: 048
     Dates: start: 20200903
  2. DEXALIN [PHENYLBUTAZONE] [Concomitant]
     Indication: Product used for unknown indication
     Dosage: UNK
     Route: 065

REACTIONS (7)
  - Dementia [Unknown]
  - Dehydration [Unknown]
  - Somnolence [Not Recovered/Not Resolved]
  - White blood cell count increased [Unknown]
  - Asthenia [Unknown]
  - Decreased appetite [Unknown]
  - Product use issue [Unknown]
